FAERS Safety Report 19314194 (Version 1)
Quarter: 2021Q2

REPORT INFORMATION
  Report Type: Spontaneous
  Country: US (occurrence: US)
  Receive Date: 20210527
  Receipt Date: 20210527
  Transmission Date: 20210717
  Serious: Yes (Death, Life-Threatening, Hospitalization, Other)
  Sender: FDA-Public Use
  Company Number: US-AMICUS THERAPEUTICS, INC.-AMI_1277

PATIENT
  Age: 21 Year
  Sex: Male
  Weight: 88.44 kg

DRUGS (1)
  1. GALAFOLD [Suspect]
     Active Substance: MIGALASTAT HYDROCHLORIDE
     Indication: FABRY^S DISEASE
     Dosage: 123 MILLIGRAM, QOD
     Route: 048
     Dates: start: 20200710

REACTIONS (3)
  - Road traffic accident [Fatal]
  - COVID-19 [Unknown]
  - Brain death [Unknown]

NARRATIVE: CASE EVENT DATE: 202101
